FAERS Safety Report 4914023-7 (Version None)
Quarter: 2006Q1

REPORT INFORMATION
  Report Type: 
  Country: None (occurrence: None)
  Receive Date: 20060216
  Receipt Date: 20051109
  Transmission Date: 20060701
  Serious: Yes (Hospitalization)
  Sender: FDA-Public Use
  Company Number: FR-ROCHE-424636

PATIENT
  Age: 36 Year
  Sex: Male

DRUGS (5)
  1. CLONAZEPAM [Suspect]
     Indication: DRUG USE FOR UNKNOWN INDICATION
     Route: 048
     Dates: start: 20050808
  2. CLOZAPINE [Suspect]
     Indication: SCHIZOPHRENIA
     Route: 065
     Dates: start: 20051006, end: 20051123
  3. DEPAKENE [Suspect]
     Route: 048
     Dates: start: 20050927
  4. ATARAX [Suspect]
     Indication: SEDATION
     Route: 048
     Dates: start: 20051007, end: 20051103
  5. LAMISIL [Concomitant]

REACTIONS (2)
  - BLOOD CREATINE PHOSPHOKINASE INCREASED [None]
  - MYALGIA [None]
